FAERS Safety Report 24756271 (Version 1)
Quarter: 2024Q4

REPORT INFORMATION
  Report Type: Spontaneous
  Country: JP (occurrence: JP)
  Receive Date: 20241220
  Receipt Date: 20241220
  Transmission Date: 20250114
  Serious: Yes (Disabling, Other)
  Sender: SANDOZ
  Company Number: JP-SANDOZ-SDZ2024JP103203

PATIENT
  Age: 80 Year
  Sex: Male

DRUGS (2)
  1. ANAPEINE [Suspect]
     Active Substance: ROPIVACAINE HYDROCHLORIDE
     Indication: Product used for unknown indication
     Dosage: UNK
     Route: 065
     Dates: start: 201808, end: 201808
  2. XYLOCAINE [Suspect]
     Active Substance: LIDOCAINE HYDROCHLORIDE
     Indication: Product used for unknown indication
     Dosage: UNK
     Route: 065
     Dates: start: 201808, end: 201808

REACTIONS (3)
  - Cauda equina syndrome [Unknown]
  - Bladder disorder [Unknown]
  - Anorectal disorder [Unknown]
